FAERS Safety Report 24371572 (Version 2)
Quarter: 2025Q1

REPORT INFORMATION
  Report Type: Spontaneous
  Country: JP (occurrence: JP)
  Receive Date: 20240927
  Receipt Date: 20250321
  Transmission Date: 20250409
  Serious: Yes (Other)
  Sender: PFIZER
  Company Number: JP-PFIZER INC-PV202400093694

PATIENT
  Age: 57 Year
  Sex: Male

DRUGS (4)
  1. ELREXFIO [Suspect]
     Active Substance: ELRANATAMAB-BCMM
     Indication: Plasma cell myeloma
     Dosage: 12 MG, 1X/DAY
     Route: 058
     Dates: start: 20240704, end: 20240704
  2. ELREXFIO [Suspect]
     Active Substance: ELRANATAMAB-BCMM
     Dosage: 12 MG, 1X/DAY
     Route: 058
     Dates: start: 20240723, end: 20240723
  3. ELREXFIO [Suspect]
     Active Substance: ELRANATAMAB-BCMM
     Indication: Plasma cell myeloma
     Dosage: 32 MG, 1X/DAY
     Route: 058
     Dates: start: 20240726, end: 20240726
  4. ELREXFIO [Suspect]
     Active Substance: ELRANATAMAB-BCMM
     Dosage: 76 MG, 1X/DAY
     Route: 058
     Dates: start: 20240730, end: 20240730

REACTIONS (7)
  - Cytokine release syndrome [Recovered/Resolved]
  - Hypogammaglobulinaemia [Unknown]
  - Atrial fibrillation [Unknown]
  - COVID-19 [Recovered/Resolved]
  - Red blood cell count decreased [Unknown]
  - COVID-19 [Unknown]
  - Cytomegalovirus infection [Unknown]

NARRATIVE: CASE EVENT DATE: 20240705
